FAERS Safety Report 9759640 (Version 3)
Quarter: 2015Q3

REPORT INFORMATION
  Report Type: Spontaneous
  Country: US (occurrence: US)
  Receive Date: 20131216
  Receipt Date: 20150806
  Transmission Date: 20151125
  Serious: No
  Sender: FDA-Public Use
  Company Number: US-GILEAD-2010-0028461

PATIENT
  Age: 78 Year
  Sex: Female
  Weight: 53.52 kg

DRUGS (9)
  1. LETAIRIS [Suspect]
     Active Substance: AMBRISENTAN
     Indication: PULMONARY ARTERIAL HYPERTENSION
     Route: 048
     Dates: start: 20100212
  2. POTASSIUM [Concomitant]
     Active Substance: POTASSIUM
  3. ASPIRIN. [Concomitant]
     Active Substance: ASPIRIN
  4. DILTIAZEM [Concomitant]
     Active Substance: DILTIAZEM
  5. TOPROL XL [Concomitant]
     Active Substance: METOPROLOL SUCCINATE
  6. MULTIVITAMIN [Concomitant]
     Active Substance: VITAMINS
  7. NAPROXEN SODIUM. [Concomitant]
     Active Substance: NAPROXEN SODIUM
  8. LASIX [Concomitant]
     Active Substance: FUROSEMIDE
  9. CELEXA [Concomitant]
     Active Substance: CITALOPRAM HYDROBROMIDE

REACTIONS (1)
  - Oedema [Not Recovered/Not Resolved]
